FAERS Safety Report 22322181 (Version 1)
Quarter: 2023Q2

REPORT INFORMATION
  Report Type: Spontaneous
  Country: US (occurrence: US)
  Receive Date: 20230516
  Receipt Date: 20230516
  Transmission Date: 20230722
  Serious: No
  Sender: FDA-Public Use
  Company Number: US-LEO Pharma-351881

PATIENT
  Sex: Female

DRUGS (1)
  1. ADBRY [Suspect]
     Active Substance: TRALOKINUMAB-LDRM
     Indication: Dermatitis atopic
     Dosage: 4 INJECTIONS (600 MG) FOR THE INITIAL DOSE THEN AT 2 INJECTIONS (300 MG) EVERY TWO WEEKS
     Route: 058
     Dates: start: 20221218

REACTIONS (2)
  - Dermatitis atopic [Unknown]
  - Therapeutic product effect decreased [Unknown]
